FAERS Safety Report 19119872 (Version 1)
Quarter: 2021Q2

REPORT INFORMATION
  Report Type: Report from Study
  Country: US (occurrence: US)
  Receive Date: 20210412
  Receipt Date: 20210412
  Transmission Date: 20210717
  Serious: No
  Sender: FDA-Public Use
  Company Number: US-ACADIA PHARMACEUTICALS INC.-ACA-2021-PIM-001112

PATIENT
  Sex: Male

DRUGS (15)
  1. DEPAKOTE [Concomitant]
     Active Substance: DIVALPROEX SODIUM
  2. AMANTADINE. [Concomitant]
     Active Substance: AMANTADINE HYDROCHLORIDE
  3. VITAMIN D [VITAMIN D NOS] [Concomitant]
     Active Substance: VITAMIN D NOS
  4. LORAZEPAM. [Concomitant]
     Active Substance: LORAZEPAM
  5. SEROQUEL [Concomitant]
     Active Substance: QUETIAPINE FUMARATE
  6. BISACODYL. [Concomitant]
     Active Substance: BISACODYL
  7. HALDOL [Concomitant]
     Active Substance: HALOPERIDOL
  8. FLORINEF ACETATE [Concomitant]
     Active Substance: FLUDROCORTISONE ACETATE
  9. MORPHINE [Concomitant]
     Active Substance: MORPHINE
  10. RASAGILINE. [Concomitant]
     Active Substance: RASAGILINE
  11. BUSPAR [Concomitant]
     Active Substance: BUSPIRONE HYDROCHLORIDE
  12. MIDODRINE [Concomitant]
     Active Substance: MIDODRINE
  13. NUPLAZID [Suspect]
     Active Substance: PIMAVANSERIN TARTRATE
     Indication: PARKINSON^S DISEASE
     Dosage: 34 MILLIGRAM, QD
     Route: 048
     Dates: start: 20200828, end: 20201215
  14. SINEMET [Concomitant]
     Active Substance: CARBIDOPA\LEVODOPA
  15. FLOMAX [Concomitant]
     Active Substance: TAMSULOSIN HYDROCHLORIDE

REACTIONS (1)
  - Disease progression [Unknown]
